FAERS Safety Report 19261509 (Version 2)
Quarter: 2021Q2

REPORT INFORMATION
  Report Type: Report from Study
  Country: AR (occurrence: AR)
  Receive Date: 20210515
  Receipt Date: 20210529
  Transmission Date: 20210717
  Serious: Yes (Hospitalization, Other)
  Sender: FDA-Public Use
  Company Number: NVSC2021AR107563

PATIENT
  Age: 79 Year
  Sex: Male

DRUGS (1)
  1. GALVUS MET [Suspect]
     Active Substance: METFORMIN HYDROCHLORIDE\VILDAGLIPTIN
     Indication: DIABETES MELLITUS
     Dosage: 2 DF, QD (STARTED APPROXIMATELY IN 2000)
     Route: 065

REACTIONS (5)
  - Cataract [Unknown]
  - Memory impairment [Unknown]
  - Cerebrovascular accident [Unknown]
  - Optic nerve disorder [Unknown]
  - Blindness [Unknown]

NARRATIVE: CASE EVENT DATE: 201807
